FAERS Safety Report 25153382 (Version 5)
Quarter: 2025Q3

REPORT INFORMATION
  Report Type: Spontaneous
  Country: US (occurrence: US)
  Receive Date: 20250403
  Receipt Date: 20250703
  Transmission Date: 20251021
  Serious: No
  Sender: BRISTOL-MYERS SQUIBB COMPANY
  Company Number: US-EXELIXIS-EXL-2025-006284

PATIENT
  Age: 55 Year
  Sex: Male

DRUGS (20)
  1. OPDIVO [Suspect]
     Active Substance: NIVOLUMAB
     Indication: Malignant connective tissue neoplasm
     Dosage: UNK, Q4WEEKS (MONTHLY)
     Route: 042
  2. OPDIVO [Suspect]
     Active Substance: NIVOLUMAB
     Indication: Soft tissue sarcoma
  3. OPDIVO [Suspect]
     Active Substance: NIVOLUMAB
     Indication: Metastases to liver
  4. OPDIVO [Suspect]
     Active Substance: NIVOLUMAB
     Indication: Metastases to pancreas
  5. OPDIVO [Suspect]
     Active Substance: NIVOLUMAB
     Indication: Metastases to lung
  6. OPDIVO [Suspect]
     Active Substance: NIVOLUMAB
     Indication: Metastases to adrenals
  7. OPDIVO [Suspect]
     Active Substance: NIVOLUMAB
     Indication: Metastasis
  8. OPDIVO [Suspect]
     Active Substance: NIVOLUMAB
     Indication: Renal cell carcinoma
  9. CABOMETYX [Suspect]
     Active Substance: CABOZANTINIB S-MALATE
     Indication: Renal cell carcinoma
     Dates: start: 20250304, end: 20250408
  10. CABOMETYX [Suspect]
     Active Substance: CABOZANTINIB S-MALATE
     Indication: Malignant connective tissue neoplasm
     Dosage: 40 MG EVERY OTHER DAY (QOD)
     Dates: start: 20250414, end: 20250414
  11. CABOMETYX [Suspect]
     Active Substance: CABOZANTINIB S-MALATE
     Indication: Soft tissue sarcoma
     Dates: start: 20250521
  12. CABOMETYX [Suspect]
     Active Substance: CABOZANTINIB S-MALATE
     Indication: Metastases to liver
  13. CABOMETYX [Suspect]
     Active Substance: CABOZANTINIB S-MALATE
     Indication: Metastases to lung
  14. CABOMETYX [Suspect]
     Active Substance: CABOZANTINIB S-MALATE
     Indication: Metastases to pancreas
  15. CABOMETYX [Suspect]
     Active Substance: CABOZANTINIB S-MALATE
     Indication: Metastases to adrenals
  16. CABOMETYX [Suspect]
     Active Substance: CABOZANTINIB S-MALATE
     Indication: Metastasis
  17. FENTANYL [Concomitant]
     Active Substance: FENTANYL
     Indication: Product used for unknown indication
  18. RITALIN [Concomitant]
     Active Substance: METHYLPHENIDATE HYDROCHLORIDE
     Indication: Product used for unknown indication
  19. MIRALAX [Concomitant]
     Active Substance: POLYETHYLENE GLYCOL 3350
     Indication: Product used for unknown indication
  20. OXYCODONE [Concomitant]
     Active Substance: OXYCODONE
     Indication: Product used for unknown indication

REACTIONS (11)
  - Nausea [Recovered/Resolved]
  - Constipation [Unknown]
  - Dysphonia [Unknown]
  - Dysgeusia [Unknown]
  - Fatigue [Unknown]
  - Vomiting [Unknown]
  - Diarrhoea [Unknown]
  - Headache [Unknown]
  - Decreased appetite [Unknown]
  - White blood cell count decreased [Unknown]
  - Stomatitis [Unknown]

NARRATIVE: CASE EVENT DATE: 20250414
